FAERS Safety Report 13694452 (Version 1)
Quarter: 2017Q2

REPORT INFORMATION
  Report Type: Spontaneous
  Country: US (occurrence: US)
  Receive Date: 20170627
  Receipt Date: 20170627
  Transmission Date: 20170830
  Serious: No
  Sender: FDA-Public Use
  Company Number: US-PURDUE-USA-2016-0134792

PATIENT
  Age: 65 Year
  Sex: Female

DRUGS (7)
  1. DRONABINOL CAPSULES [Suspect]
     Active Substance: DRONABINOL
     Dosage: 325 MG, DAILY
     Route: 048
     Dates: start: 2016, end: 2016
  2. RYTHMOL [Concomitant]
     Active Substance: PROPAFENONE HYDROCHLORIDE
     Indication: ATRIAL FIBRILLATION
     Dosage: 225 MG, DAILY
     Route: 048
  3. DRONABINOL CAPSULES [Suspect]
     Active Substance: DRONABINOL
     Dosage: 225 MG, DAILY
     Route: 048
     Dates: start: 20160817, end: 20160831
  4. DRONABINOL CAPSULES [Suspect]
     Active Substance: DRONABINOL
     Indication: ATRIAL FIBRILLATION
     Dosage: 325 MG, DAILY
     Route: 048
     Dates: start: 2016, end: 2016
  5. SYNTHROID [Concomitant]
     Active Substance: LEVOTHYROXINE SODIUM
     Indication: PRODUCT USED FOR UNKNOWN INDICATION
     Dosage: 50 MCG, DAILY
     Route: 048
     Dates: start: 2011
  6. RYTHMOL [Concomitant]
     Active Substance: PROPAFENONE HYDROCHLORIDE
     Dosage: 225 MG, PM
     Route: 048
     Dates: start: 20160901
  7. DRONABINOL CAPSULES [Suspect]
     Active Substance: DRONABINOL
     Dosage: 225 MG, AM
     Route: 048
     Dates: start: 20160901, end: 2016

REACTIONS (2)
  - Arrhythmia [Recovered/Resolved]
  - Off label use [Recovered/Resolved]

NARRATIVE: CASE EVENT DATE: 2016
